FAERS Safety Report 5945932-8 (Version None)
Quarter: 2008Q4

REPORT INFORMATION
  Report Type: 
  Country: None (occurrence: None)
  Receive Date: 20081110
  Receipt Date: 20081031
  Transmission Date: 20090506
  Serious: Yes (Hospitalization)
  Sender: FDA-Public Use
  Company Number: US-BRISTOL-MYERS SQUIBB COMPANY-14103642

PATIENT
  Age: 48 Year
  Sex: Male

DRUGS (3)
  1. ARIPIPRAZOLE [Suspect]
     Indication: SCHIZOPHRENIA
     Dosage: 04JAN08-07FEB08: 10 MG QD PO (35DAYS)
     Route: 030
     Dates: start: 20080125, end: 20080125
  2. ARIPIPRAZOLE [Suspect]
     Route: 048
     Dates: start: 20080104, end: 20080207
  3. COGENTIN [Concomitant]

REACTIONS (5)
  - AGITATION [None]
  - CONDITION AGGRAVATED [None]
  - HOMICIDAL IDEATION [None]
  - PARANOIA [None]
  - PSYCHOTIC DISORDER [None]
